FAERS Safety Report 7286689-0 (Version None)
Quarter: 2011Q1

REPORT INFORMATION
  Report Type: 
  Country: None (occurrence: None)
  Receive Date: 20110210
  Receipt Date: 20110202
  Transmission Date: 20110831
  Serious: Yes (Hospitalization, Other)
  Sender: FDA-Public Use
  Company Number: JP-BAXTER-2011BH002873

PATIENT
  Age: 58 Year
  Sex: Female

DRUGS (1)
  1. DIANEAL [Suspect]
     Indication: RENAL FAILURE CHRONIC
     Route: 033
     Dates: end: 20101001

REACTIONS (3)
  - LOSS OF CONSCIOUSNESS [None]
  - BRAIN CONTUSION [None]
  - FALL [None]
